FAERS Safety Report 6300988-8 (Version None)
Quarter: 2009Q3

REPORT INFORMATION
  Report Type: 
  Country: None (occurrence: None)
  Receive Date: 20090807
  Receipt Date: 20090728
  Transmission Date: 20100115
  Serious: Yes (Hospitalization)
  Sender: FDA-Public Use
  Company Number: JP-JNJFOC-20071003491

PATIENT
  Sex: Female
  Weight: 38 kg

DRUGS (22)
  1. REMICADE [Suspect]
     Dosage: 13TH DOSE
     Route: 042
  2. REMICADE [Suspect]
     Dosage: DOSES 6 TO 12
     Route: 042
  3. REMICADE [Suspect]
     Route: 042
  4. REMICADE [Suspect]
     Route: 042
  5. REMICADE [Suspect]
     Route: 042
  6. REMICADE [Suspect]
     Route: 042
  7. REMICADE [Suspect]
     Indication: RHEUMATOID ARTHRITIS
     Dosage: INFUSIONS 2-12
     Route: 042
  8. RHEUMATREX [Suspect]
     Route: 048
  9. RHEUMATREX [Suspect]
     Indication: RHEUMATOID ARTHRITIS
     Route: 048
  10. ISONIAZID [Suspect]
     Indication: ANTIBIOTIC PROPHYLAXIS
     Route: 048
  11. RIFAMPICIN [Suspect]
     Indication: ANTIBIOTIC PROPHYLAXIS
     Route: 048
  12. MOBIC [Suspect]
     Indication: RHEUMATOID ARTHRITIS
     Route: 048
  13. HYDROCORTISONE SODIUM PHOSPHATE [Suspect]
     Indication: DRUG USE FOR UNKNOWN INDICATION
     Route: 042
  14. DIPHENHYDRAMINE HCL [Suspect]
     Indication: DRUG USE FOR UNKNOWN INDICATION
     Route: 048
  15. PREDNISOLONE [Concomitant]
     Route: 048
  16. LORCAM [Concomitant]
     Indication: RHEUMATOID ARTHRITIS
     Route: 048
  17. FOLIAMIN [Concomitant]
     Route: 048
  18. CYTOTEC [Concomitant]
     Route: 048
  19. TALION [Concomitant]
     Route: 048
  20. SUCRALFATE [Concomitant]
     Route: 048
  21. CYANOCOBALAMIN [Concomitant]
     Route: 048
  22. NAPROXEN [Concomitant]
     Indication: RHEUMATOID ARTHRITIS

REACTIONS (2)
  - HEPATIC FUNCTION ABNORMAL [None]
  - HODGKIN'S DISEASE STAGE III [None]
